FAERS Safety Report 19706975 (Version 2)
Quarter: 2021Q3

REPORT INFORMATION
  Report Type: Spontaneous
  Country: US (occurrence: US)
  Receive Date: 20210817
  Receipt Date: 20210902
  Transmission Date: 20211014
  Serious: No
  Sender: FDA-Public Use
  Company Number: US-MYLANLABS-2021M1050146

PATIENT
  Sex: Female

DRUGS (1)
  1. ROPINIROLE TABLETS, USP [Suspect]
     Active Substance: ROPINIROLE
     Indication: RESTLESS LEGS SYNDROME
     Dosage: UP TO 4 MILLIGRAM, DAILY, QD
     Route: 048

REACTIONS (2)
  - Product physical issue [Not Recovered/Not Resolved]
  - Migraine [Unknown]
